FAERS Safety Report 5891592-4 (Version None)
Quarter: 2008Q3

REPORT INFORMATION
  Report Type: 
  Country: None (occurrence: None)
  Receive Date: 20080908
  Receipt Date: 20080620
  Transmission Date: 20090109
  Serious: No
  Sender: FDA-Public Use
  Company Number: 002#2#2008-00529

PATIENT
  Sex: Male
  Weight: 97.5234 kg

DRUGS (4)
  1. NEUPRO [Suspect]
     Indication: PARKINSON'S DISEASE
     Dosage: 6MG/24H, 1 IN 1 D, TRANSDERMAL
     Route: 062
     Dates: start: 20071001, end: 20080601
  2. SINEMET [Concomitant]
  3. AMANTADINE [Concomitant]
  4. MULTI-VITAMINS [Concomitant]

REACTIONS (1)
  - TREMOR [None]
